FAERS Safety Report 22003447 (Version 1)
Quarter: 2023Q1

REPORT INFORMATION
  Report Type: Report from Study
  Country: US (occurrence: US)
  Receive Date: 20230217
  Receipt Date: 20230217
  Transmission Date: 20230418
  Serious: Yes (Other)
  Sender: FDA-Public Use
  Company Number: US-AMGEN-USASL2023013146

PATIENT
  Age: 74 Year
  Sex: Female

DRUGS (1)
  1. REPATHA [Suspect]
     Active Substance: EVOLOCUMAB
     Indication: Blood cholesterol increased
     Dosage: 140 MILLIGRAM, Q2WK
     Route: 065
     Dates: start: 20230120

REACTIONS (11)
  - Arrhythmia [Unknown]
  - Blood pressure systolic increased [Unknown]
  - Blood pressure diastolic increased [Unknown]
  - Injection site reaction [Unknown]
  - Arthralgia [Unknown]
  - Headache [Unknown]
  - Device use error [Unknown]
  - COVID-19 [Unknown]
  - Fear of injection [Unknown]
  - Device difficult to use [Unknown]
  - Injection site indentation [Unknown]

NARRATIVE: CASE EVENT DATE: 20230120
